FAERS Safety Report 6377587-5 (Version None)
Quarter: 2009Q3

REPORT INFORMATION
  Report Type: 
  Country: None (occurrence: None)
  Receive Date: 20090923
  Receipt Date: 20090923
  Transmission Date: 20100115
  Serious: Yes (Hospitalization)
  Sender: FDA-Public Use
  Company Number: None

PATIENT
  Sex: Female
  Weight: 75.3 kg

DRUGS (4)
  1. BACTRIM [Suspect]
     Indication: ABSCESS
     Dosage: UNKNOWN
     Dates: start: 20090721, end: 20090728
  2. LANTUS [Concomitant]
  3. HUMALOG [Concomitant]
  4. AMLODIPINE [Concomitant]

REACTIONS (3)
  - BLOOD POTASSIUM INCREASED [None]
  - ELECTROCARDIOGRAM T WAVE PEAKED [None]
  - FATIGUE [None]
